FAERS Safety Report 22046458 (Version 8)
Quarter: 2023Q2

REPORT INFORMATION
  Report Type: Report from Study
  Country: BR (occurrence: BR)
  Receive Date: 20230228
  Receipt Date: 20230627
  Transmission Date: 20230721
  Serious: Yes (Other)
  Sender: FDA-Public Use
  Company Number: BR-JNJFOC-20230237849

PATIENT
  Age: 28 Year
  Sex: Female
  Weight: 52.8 kg

DRUGS (17)
  1. AMIVANTAMAB [Suspect]
     Active Substance: AMIVANTAMAB
     Indication: Non-small cell lung cancer
     Dosage: MOST RECENT DOSE ON 08-MAR-2023
     Route: 058
     Dates: start: 20230215
  2. LEVONORGESTREL AND ETHINYL ESTRADIOL [Concomitant]
     Active Substance: ETHINYL ESTRADIOL\LEVONORGESTREL
     Indication: Contraception
     Route: 048
     Dates: start: 20120101
  3. ONDANSETRON [Concomitant]
     Active Substance: ONDANSETRON
     Indication: Nausea
     Route: 048
     Dates: start: 20230201, end: 20230212
  4. FOLIC ACID [Concomitant]
     Active Substance: FOLIC ACID
     Indication: Prophylaxis
     Route: 048
     Dates: start: 20230201, end: 20230214
  5. DIPYRONE [Concomitant]
     Active Substance: DIPYRONE
     Indication: Chest pain
     Route: 048
     Dates: start: 20230201, end: 20230215
  6. DIPYRONE [Concomitant]
     Active Substance: DIPYRONE
     Indication: Bone pain
     Route: 042
     Dates: start: 20230215, end: 20230215
  7. DIPYRONE [Concomitant]
     Active Substance: DIPYRONE
     Indication: Administration related reaction
  8. GABAPENTIN [Concomitant]
     Active Substance: GABAPENTIN
     Indication: Chest pain
     Route: 048
     Dates: start: 20230201, end: 20230315
  9. GABAPENTIN [Concomitant]
     Active Substance: GABAPENTIN
     Indication: Bone pain
  10. LACTULOSE [Concomitant]
     Active Substance: LACTULOSE
     Indication: Constipation
     Route: 048
     Dates: start: 20230201, end: 20230315
  11. MORPHINE [Concomitant]
     Active Substance: MORPHINE
     Indication: Chest pain
     Route: 048
     Dates: start: 20230201, end: 20230315
  12. MORPHINE [Concomitant]
     Active Substance: MORPHINE
     Indication: Bone pain
  13. VITAMIN B12 [Concomitant]
     Active Substance: CYANOCOBALAMIN
     Indication: Prophylaxis
     Dosage: DOSE: 1 (DOSAGE UNIT NOT PROVIDED)
     Route: 030
     Dates: start: 20230203, end: 20230203
  14. ACETAMINOPHEN [Concomitant]
     Active Substance: ACETAMINOPHEN
     Indication: Bone pain
     Route: 048
     Dates: start: 20230216, end: 20230315
  15. ACETAMINOPHEN [Concomitant]
     Active Substance: ACETAMINOPHEN
     Indication: Chest pain
  16. RIVAROXABAN [Concomitant]
     Active Substance: RIVAROXABAN
     Indication: Non-small cell lung cancer
     Route: 048
     Dates: start: 20230223
  17. CALCIUM [Concomitant]
     Active Substance: CALCIUM
     Indication: Prophylaxis
     Route: 048
     Dates: start: 20230302, end: 20230412

REACTIONS (2)
  - Administration related reaction [Recovered/Resolved]
  - Dermatitis acneiform [Recovered/Resolved]

NARRATIVE: CASE EVENT DATE: 20230215
